FAERS Safety Report 12542637 (Version 2)
Quarter: 2016Q3

REPORT INFORMATION
  Report Type: Spontaneous
  Country: IN (occurrence: IN)
  Receive Date: 20160709
  Receipt Date: 20160709
  Transmission Date: 20161109
  Serious: Yes (Hospitalization)
  Sender: FDA-Public Use
  Company Number: IN-CIPLA LTD.-2014IN00068

PATIENT

DRUGS (1)
  1. AMLODIPINE [Suspect]
     Active Substance: AMLODIPINE BESYLATE
     Dosage: 15 MG, TID, ABOUT 12.5 TIMES THE MAXIMUM DOSE OF AMLODIPINE
     Route: 065

REACTIONS (17)
  - Hyperglycaemia [Recovered/Resolved]
  - Renal failure [Recovered/Resolved]
  - Pulmonary oedema [Recovered/Resolved]
  - Anaemia [Recovered/Resolved]
  - Metabolic acidosis [Recovered/Resolved]
  - Oliguria [Recovered/Resolved]
  - Cardiac failure congestive [Recovered/Resolved]
  - Vomiting [Recovering/Resolving]
  - Loss of consciousness [Recovering/Resolving]
  - Crepitations [Recovering/Resolving]
  - Respiratory distress [Recovering/Resolving]
  - Hepatomegaly [Recovering/Resolving]
  - Wrong drug administered [Unknown]
  - Heart sounds abnormal [Recovering/Resolving]
  - Toxicity to various agents [Unknown]
  - Lethargy [Recovering/Resolving]
  - Shock [Recovering/Resolving]
